FAERS Safety Report 5799731-0 (Version None)
Quarter: 2008Q3

REPORT INFORMATION
  Report Type: 
  Country: None (occurrence: None)
  Receive Date: 20080703
  Receipt Date: 20080630
  Transmission Date: 20090109
  Serious: Yes (Hospitalization)
  Sender: FDA-Public Use
  Company Number: CN-BAYER-200821346GPV

PATIENT
  Age: 48 Year
  Sex: Male
  Weight: 67 kg

DRUGS (2)
  1. NEXAVAR [Suspect]
     Indication: METASTASES TO LUNG
     Dosage: TOTAL DAILY DOSE: 800 MG  UNIT DOSE: 200 MG
     Route: 048
     Dates: start: 20080513
  2. INF-A [Suspect]
     Indication: METASTASES TO LUNG
     Route: 042
     Dates: start: 20080513

REACTIONS (2)
  - PALMAR-PLANTAR ERYTHRODYSAESTHESIA SYNDROME [None]
  - PLEURAL EFFUSION [None]
